FAERS Safety Report 8392078-8 (Version None)
Quarter: 2012Q2

REPORT INFORMATION
  Report Type: 
  Country: None (occurrence: None)
  Receive Date: 20120529
  Receipt Date: 20120517
  Transmission Date: 20120825
  Serious: No
  Sender: FDA-Public Use
  Company Number: US-B.I. PHARMACEUTICALS,INC./RIDGEFIELD-2012-BP-11075BP

PATIENT
  Age: 71 Year
  Sex: Female

DRUGS (2)
  1. OXYGEN [Concomitant]
  2. SPIRIVA [Suspect]
     Dosage: 18 MCG
     Route: 055
     Dates: start: 20111201

REACTIONS (1)
  - DYSPNOEA [None]
